FAERS Safety Report 11114679 (Version 1)
Quarter: 2015Q2

REPORT INFORMATION
  Report Type: Spontaneous
  Country: JP (occurrence: None)
  Receive Date: 20150512
  Receipt Date: 20150512
  Transmission Date: 20150821
  Serious: Yes (Hospitalization)
  Sender: FDA-Public Use
  Company Number: FK201502168

PATIENT
  Age: 64 Year
  Sex: Male

DRUGS (3)
  1. CARBOPLATIN (MANUFACTURER UNKNOWN) (CARBOPLATIN) (CARBOPLATIN) [Suspect]
     Active Substance: CARBOPLATIN
     Indication: LUNG ADENOCARCINOMA STAGE III
  2. PEMETREXED (PEMETREXED) (PEMETREXED) [Suspect]
     Active Substance: PEMETREXED
     Indication: LUNG ADENOCARCINOMA STAGE III
  3. MIGLITOL. [Suspect]
     Active Substance: MIGLITOL
     Indication: HYPERGLYCAEMIA

REACTIONS (5)
  - Hyperglycaemia [None]
  - Gastrointestinal necrosis [None]
  - Multi-organ failure [None]
  - Liver disorder [None]
  - Sepsis [None]
